FAERS Safety Report 9486216 (Version 1)
Quarter: 2013Q3

REPORT INFORMATION
  Report Type: Spontaneous
  Country: CN (occurrence: CN)
  Receive Date: 20130829
  Receipt Date: 20130829
  Transmission Date: 20140515
  Serious: Yes (Hospitalization)
  Sender: FDA-Public Use
  Company Number: CN-PFIZER INC-2013248607

PATIENT
  Age: 19 Month
  Sex: Female
  Weight: 15 kg

DRUGS (1)
  1. SOLU-MEDROL [Suspect]
     Indication: HAND-FOOT-AND-MOUTH DISEASE
     Dosage: 60 MG, 1X/DAY
     Route: 041
     Dates: start: 20120729, end: 20120729

REACTIONS (5)
  - Pallor [Recovering/Resolving]
  - Cyanosis [Recovering/Resolving]
  - Hyperhidrosis [Recovering/Resolving]
  - Rash [Recovering/Resolving]
  - Pruritus [Recovering/Resolving]
